FAERS Safety Report 5374919-1 (Version None)
Quarter: 2007Q2

REPORT INFORMATION
  Report Type: 
  Country: None (occurrence: None)
  Receive Date: 20070629
  Receipt Date: 20070614
  Transmission Date: 20071010
  Serious: Yes (Other)
  Sender: FDA-Public Use
  Company Number: CA-ELI_LILLY_AND_COMPANY-CA200706005865

PATIENT
  Age: 70 Year
  Sex: Female

DRUGS (8)
  1. FORTEO [Suspect]
     Indication: OSTEOPOROSIS
     Dosage: 20 UG, DAILY (1/D)
     Route: 058
     Dates: start: 20060717
  2. ATACAND [Concomitant]
  3. SERAX [Concomitant]
  4. ELMIRON [Concomitant]
  5. ACETAMINOPHEN [Concomitant]
  6. NEXIUM [Concomitant]
  7. ACCUPRIL [Concomitant]
  8. FENTANYL [Concomitant]

REACTIONS (2)
  - ANKLE FRACTURE [None]
  - CALCIUM IONISED INCREASED [None]
